FAERS Safety Report 9871356 (Version 1)
Quarter: 2014Q1

REPORT INFORMATION
  Report Type: Spontaneous
  Country: AT (occurrence: AT)
  Receive Date: 20140205
  Receipt Date: 20140205
  Transmission Date: 20141002
  Serious: Yes (Other)
  Sender: FDA-Public Use
  Company Number: PHHY2014AT012603

PATIENT
  Age: 41 Year
  Sex: Female

DRUGS (2)
  1. CICLOSPORIN [Suspect]
     Indication: IMMUNOSUPPRESSION
  2. PREDNISOLONE [Suspect]

REACTIONS (4)
  - Hydronephrosis [Unknown]
  - Premature labour [Unknown]
  - Immunosuppressant drug level increased [Unknown]
  - Exposure during pregnancy [Unknown]
